FAERS Safety Report 6655699-6 (Version None)
Quarter: 2010Q1

REPORT INFORMATION
  Report Type: 
  Country: None (occurrence: None)
  Receive Date: 20100326
  Receipt Date: 20100326
  Transmission Date: 20100710
  Serious: Yes (Other)
  Sender: FDA-Public Use
  Company Number: None

PATIENT
  Sex: Female
  Weight: 86.1834 kg

DRUGS (3)
  1. FLUTICASONE PROPIONATE [Suspect]
     Indication: MULTIPLE ALLERGIES
     Dosage: TWO SPRAYS X 2 50MG EACH NOSTRIL TWICE A DAY NASAL
     Route: 045
     Dates: start: 20100309
  2. FLUTICASONE PROPIONATE [Suspect]
     Indication: MULTIPLE ALLERGIES
     Dosage: TWO SPRAYS X 2 50MG EACH NOSTRIL TWICE A DAY NASAL
     Route: 045
     Dates: start: 20100310
  3. FLUTICASONE PROPIONATE [Suspect]
     Indication: MULTIPLE ALLERGIES
     Dosage: TWO SPRAYS X 2 50MG EACH NOSTRIL TWICE A DAY NASAL
     Route: 045
     Dates: start: 20100311

REACTIONS (4)
  - FEAR [None]
  - ODYNOPHAGIA [None]
  - PHARYNGEAL OEDEMA [None]
  - SWOLLEN TONGUE [None]
